FAERS Safety Report 9768875 (Version 3)
Quarter: 2014Q1

REPORT INFORMATION
  Report Type: Spontaneous
  Country: FR (occurrence: FR)
  Receive Date: 20131218
  Receipt Date: 20140226
  Transmission Date: 20141002
  Serious: Yes (Hospitalization, Other)
  Sender: FDA-Public Use
  Company Number: FR-AMGEN-FRASP2013087598

PATIENT
  Age: 60 Year
  Sex: Female
  Weight: 90 kg

DRUGS (2)
  1. NPLATE [Suspect]
     Indication: IMMUNE THROMBOCYTOPENIC PURPURA
     Dosage: 400 MUG, QWK
     Route: 058
     Dates: start: 201303
  2. SPRYCEL /05677301/ [Suspect]
     Indication: ACUTE LYMPHOCYTIC LEUKAEMIA
     Dosage: 100 MG, QD
     Route: 048
     Dates: end: 20131018

REACTIONS (5)
  - Platelet count decreased [Not Recovered/Not Resolved]
  - Generalised oedema [Recovered/Resolved]
  - Rectal haemorrhage [Unknown]
  - Renal failure [Recovered/Resolved]
  - Diarrhoea [Recovered/Resolved]
